FAERS Safety Report 24404742 (Version 1)
Quarter: 2024Q4

REPORT INFORMATION
  Report Type: Report from Study
  Country: US (occurrence: US)
  Receive Date: 20241007
  Receipt Date: 20241007
  Transmission Date: 20250115
  Serious: No
  Sender: ROCHE
  Company Number: US-ROCHE-3531696

PATIENT
  Age: 52 Year
  Sex: Female

DRUGS (2)
  1. GAZYVA [Suspect]
     Active Substance: OBINUTUZUMAB
     Indication: Diffuse large B-cell lymphoma
     Route: 042
     Dates: start: 20240224
  2. COLUMVI [Suspect]
     Active Substance: GLOFITAMAB-GXBM
     Indication: Diffuse large B-cell lymphoma
     Dosage: 08/MAR/2024 RECEIVED 10 MG?15/MAR/2024 RECEIVED 30 MG
     Route: 042
     Dates: start: 20240301

REACTIONS (2)
  - Off label use [Unknown]
  - No adverse event [Unknown]
